FAERS Safety Report 16895575 (Version 1)
Quarter: 2019Q4

REPORT INFORMATION
  Report Type: Spontaneous
  Country: DE (occurrence: DE)
  Receive Date: 20191008
  Receipt Date: 20191008
  Transmission Date: 20200122
  Serious: Yes (Other)
  Sender: FDA-Public Use
  Company Number: DE-BRISTOL-MYERS SQUIBB COMPANY-BMS-2019-095423

PATIENT
  Age: 80 Year
  Sex: Female
  Weight: 80 kg

DRUGS (7)
  1. URO VAXOM [Concomitant]
     Active Substance: ESCHERICHIA COLI
     Indication: PRODUCT USED FOR UNKNOWN INDICATION
     Dosage: 6 MILLIGRAM DAILY
     Route: 048
  2. ELIQUIS [Suspect]
     Active Substance: APIXABAN
     Indication: CEREBROVASCULAR ACCIDENT PROPHYLAXIS
     Dosage: 10 MILLIGRAM DAILY, TWO SEPARATED DOSES
     Route: 048
  3. NEBIVOLOL. [Concomitant]
     Active Substance: NEBIVOLOL
     Indication: HYPERTENSION
     Dosage: 5 MILLIGRAM DAILY
     Route: 048
  4. CANDESARTAN. [Concomitant]
     Active Substance: CANDESARTAN
     Indication: HYPERTENSION
     Dosage: 8 MILLIGRAM DAILY
     Route: 048
  5. METFORMIN [Concomitant]
     Active Substance: METFORMIN HYDROCHLORIDE
     Indication: HYPERTENSION
     Dosage: 2000 MILLIGRAM DAILY
     Route: 048
  6. PANTOPRAZOL A [Concomitant]
     Indication: GASTROINTESTINAL DISORDER PROPHYLAXIS
     Dosage: 20 MILLIGRAM
     Route: 048
  7. VITAMIN B12 [Concomitant]
     Active Substance: CYANOCOBALAMIN
     Indication: VITAMIN B12 DEFICIENCY
     Route: 065

REACTIONS (2)
  - Nausea [Recovered/Resolved]
  - Pancytopenia [Recovered/Resolved]

NARRATIVE: CASE EVENT DATE: 20190803
